FAERS Safety Report 6284221-1 (Version None)
Quarter: 2009Q3

REPORT INFORMATION
  Report Type: 
  Country: None (occurrence: None)
  Receive Date: 20090722
  Receipt Date: 20090707
  Transmission Date: 20100115
  Serious: Yes (Other)
  Sender: FDA-Public Use
  Company Number: DSJ-2008-14824

PATIENT
  Age: 64 Year
  Sex: Female
  Weight: 44 kg

DRUGS (3)
  1. OLMESARTAN MEDOXOMIL [Suspect]
     Indication: HYPERTENSION
     Dosage: 20 MG (20 MG, 1 IN 1 D), PER ORAL
     Route: 048
     Dates: start: 20080416, end: 20081209
  2. MEVALOTIN (PRAVASTATIN SODIUM) (PREPARATION FOR ORAL USE (NOS)) (PRAVA [Suspect]
     Indication: HYPERLIPIDAEMIA
     Dosage: 10 MG (10 MG, 1 IN 1 D), PER ORAL
     Route: 048
     Dates: start: 20060914, end: 20081209
  3. CALBLOCK (AZELNIDIPINE) [Concomitant]

REACTIONS (3)
  - BLOOD GLUCOSE INCREASED [None]
  - HYPOGLYCAEMIA [None]
  - SKIN CHAPPED [None]
